FAERS Safety Report 10010024 (Version 3)
Quarter: 2015Q2

REPORT INFORMATION
  Report Type: Spontaneous
  Country: DE (occurrence: DE)
  Receive Date: 20140313
  Receipt Date: 20150605
  Transmission Date: 20150821
  Serious: Yes (Other)
  Sender: FDA-Public Use
  Company Number: DE-ABBVIE-11P-083-0855315-00

PATIENT
  Age: 51 Year
  Sex: Male

DRUGS (9)
  1. INFLIXIMAB [Suspect]
     Active Substance: INFLIXIMAB
     Indication: PSORIASIS
     Dosage: DURING WEEKS 0,2, 6, AND 14
     Route: 042
     Dates: start: 200510
  2. UVB [Concomitant]
     Indication: PSORIASIS
     Dosage: 27 SESSIONS
     Route: 065
     Dates: start: 200504, end: 200505
  3. CLOBETASOL [Concomitant]
     Active Substance: CLOBETASOL
     Indication: PSORIASIS
     Route: 065
  4. ADALIMUMAB [Suspect]
     Active Substance: ADALIMUMAB
     Indication: PSORIASIS
     Route: 058
  5. CYCLOSPORINE A [Suspect]
     Active Substance: CYCLOSPORINE
     Indication: PSORIASIS
     Route: 065
  6. INFLIXIMAB [Suspect]
     Active Substance: INFLIXIMAB
     Dosage: 6 INFUSIONS AT 8 WEEKS INTERVAL
     Route: 042
  7. PUVA CREAM [Concomitant]
     Indication: PSORIASIS
     Dosage: 14 SESSIONS
     Route: 065
     Dates: start: 2000
  8. ETANERCEPT [Suspect]
     Active Substance: ETANERCEPT
     Indication: PSORIASIS
     Route: 058
     Dates: start: 200706
  9. CALCIPOTRIOL [Concomitant]
     Active Substance: CALCIPOTRIENE
     Indication: PSORIASIS
     Route: 061
     Dates: start: 1993

REACTIONS (3)
  - Keratoacanthoma [Unknown]
  - Malignant melanoma stage I [Unknown]
  - Blood pressure increased [Unknown]

NARRATIVE: CASE EVENT DATE: 200805
